FAERS Safety Report 4722231-3 (Version None)
Quarter: 2005Q3

REPORT INFORMATION
  Report Type: 
  Country: None (occurrence: None)
  Receive Date: 20050722
  Receipt Date: 20040913
  Transmission Date: 20060218
  Serious: No
  Sender: FDA-Public Use
  Company Number: US-GLAXOSMITHKLINE-A0525450A

PATIENT
  Age: 41 Year
  Sex: Female

DRUGS (2)
  1. AVANDIA [Suspect]
     Dosage: 2MG PER DAY
     Route: 048
  2. GLUCOVANCE [Concomitant]

REACTIONS (2)
  - DIZZINESS [None]
  - MENSTRUAL DISORDER [None]
